FAERS Safety Report 12430047 (Version 1)
Quarter: 2016Q2

REPORT INFORMATION
  Report Type: Spontaneous
  Country: US (occurrence: US)
  Receive Date: 20160602
  Receipt Date: 20160602
  Transmission Date: 20160815
  Serious: No
  Sender: FDA-Public Use
  Company Number: US-NEPHRON PHARMACEUTICALS CORPORATION-1053126

PATIENT
  Age: 71 Year
  Sex: Male

DRUGS (14)
  1. FUROSEMIDE. [Concomitant]
     Active Substance: FUROSEMIDE
     Route: 048
     Dates: end: 20151201
  2. HYDROCHLOROTHIAZIDE. [Concomitant]
     Active Substance: HYDROCHLOROTHIAZIDE
  3. QVAR [Concomitant]
     Active Substance: BECLOMETHASONE DIPROPIONATE
     Route: 055
     Dates: end: 20151201
  4. DILTIAZEM HCL [Concomitant]
     Active Substance: DILTIAZEM HYDROCHLORIDE
     Route: 048
     Dates: start: 20050101, end: 20151201
  5. IRON [Concomitant]
     Active Substance: IRON
     Dates: start: 20151015, end: 20151201
  6. CALTRATE [Concomitant]
     Active Substance: CALCIUM CARBONATE
     Route: 048
     Dates: end: 20151201
  7. PROAIR HFA [Concomitant]
     Active Substance: ALBUTEROL SULFATE
     Route: 055
     Dates: end: 20151201
  8. WARFARIN SODIUM. [Concomitant]
     Active Substance: WARFARIN SODIUM
     Route: 048
     Dates: start: 20151015, end: 20151201
  9. OXYGEN. [Concomitant]
     Active Substance: OXYGEN
     Dates: end: 20151201
  10. SPIRIVA [Concomitant]
     Active Substance: TIOTROPIUM BROMIDE MONOHYDRATE
     Route: 055
     Dates: end: 20151201
  11. BUPROPION. [Concomitant]
     Active Substance: BUPROPION
     Route: 048
     Dates: end: 20151201
  12. TAMSULOSIN HYDROCHLORIDE. [Concomitant]
     Active Substance: TAMSULOSIN HYDROCHLORIDE
     Route: 048
  13. IPRATROPIUM BROMIDE AND ALBUTEROL SULFATE [Suspect]
     Active Substance: ALBUTEROL SULFATE\IPRATROPIUM BROMIDE
     Indication: CHRONIC OBSTRUCTIVE PULMONARY DISEASE
     Route: 055
     Dates: end: 20151201
  14. REVATIO [Concomitant]
     Active Substance: SILDENAFIL CITRATE
     Route: 048
     Dates: start: 20020101, end: 20151201

REACTIONS (1)
  - Drug ineffective [None]
